FAERS Safety Report 20104480 (Version 6)
Quarter: 2022Q2

REPORT INFORMATION
  Report Type: Report from Study
  Country: FI (occurrence: FI)
  Receive Date: 20211123
  Receipt Date: 20220503
  Transmission Date: 20220721
  Serious: Yes (Hospitalization)
  Sender: FDA-Public Use
  Company Number: FI-BRISTOL-MYERS SQUIBB COMPANY-BMS-2021-122087

PATIENT
  Age: 60 Year
  Sex: Male
  Weight: 79 kg

DRUGS (11)
  1. BMS-986249 [Suspect]
     Active Substance: BMS-986249
     Indication: Malignant melanoma
     Dosage: 1200 MILLIGRAM
     Route: 065
     Dates: start: 20211102, end: 20211102
  2. NIVOLUMAB [Suspect]
     Active Substance: NIVOLUMAB
     Indication: Malignant melanoma
     Dosage: 480 MILLIGRAM
     Route: 065
     Dates: start: 20211102, end: 20211102
  3. LOPERAMIDE [Concomitant]
     Active Substance: LOPERAMIDE
     Indication: Product used for unknown indication
     Dosage: 16 MILLIGRAM
     Route: 048
     Dates: start: 20211109, end: 20211114
  4. LOSARTAN [Concomitant]
     Active Substance: LOSARTAN
     Indication: Product used for unknown indication
     Dosage: 100 MILLIGRAM
     Route: 048
     Dates: start: 20210812
  5. PANTOPRAZOLE [Concomitant]
     Active Substance: PANTOPRAZOLE
     Indication: Product used for unknown indication
     Dosage: 20 MILLIGRAM
     Route: 048
     Dates: start: 20210923
  6. CEFTRIAXONE [Concomitant]
     Active Substance: CEFTRIAXONE
     Indication: Adverse event
     Route: 042
     Dates: start: 20211114, end: 20211117
  7. DEXAMETHASONE [Concomitant]
     Active Substance: DEXAMETHASONE
     Indication: Product used for unknown indication
     Dosage: 1 MILLIGRAM
     Route: 048
     Dates: start: 20211005, end: 20211102
  8. DEXAMETHASONE [Concomitant]
     Active Substance: DEXAMETHASONE
     Dosage: 0.5 MILLIGRAM
     Route: 048
     Dates: start: 20211103, end: 20211110
  9. TINZAPARIN SODIUM [Concomitant]
     Active Substance: TINZAPARIN SODIUM
     Indication: Product used for unknown indication
     Dosage: 4500-UNITS NOT SPECIFIED
     Route: 058
     Dates: start: 20211007
  10. ACETAMINOPHEN\CODEINE PHOSPHATE [Concomitant]
     Active Substance: ACETAMINOPHEN\CODEINE PHOSPHATE
     Indication: Product used for unknown indication
     Dosage: PANACOD (PRN)- 1 (UNITS NOT SPECIFIED)
     Route: 048
     Dates: start: 20210813, end: 20211114
  11. OXAZEPAM [Concomitant]
     Active Substance: OXAZEPAM
     Indication: Product used for unknown indication
     Dosage: 45 MILLIGRAM
     Route: 048
     Dates: start: 20210826

REACTIONS (1)
  - Diarrhoea [Recovered/Resolved]

NARRATIVE: CASE EVENT DATE: 20211114
